FAERS Safety Report 21537903 (Version 4)
Quarter: 2023Q1

REPORT INFORMATION
  Report Type: Spontaneous
  Country: KR (occurrence: KR)
  Receive Date: 20221101
  Receipt Date: 20230106
  Transmission Date: 20230418
  Serious: Yes (Hospitalization, Other)
  Sender: FDA-Public Use
  Company Number: KR-009507513-2210KOR009828

PATIENT
  Age: 70 Year
  Sex: Male

DRUGS (6)
  1. LAGEVRIO [Suspect]
     Active Substance: MOLNUPIRAVIR
     Indication: COVID-19 treatment
     Dosage: 4 CAPSULES, 2TIMES A DAY, FOR 5 DAYS
     Route: 048
     Dates: start: 20221014, end: 20221014
  2. TWOLION [Concomitant]
     Dosage: 1 DOSAGE FORM, BID PER 7 DAYS
     Route: 048
  3. STILLEN [Concomitant]
     Dosage: 1 DOSAGE FORM, BID, PER 7 DAYS
     Route: 048
  4. ACETYLCYSTEINE [Concomitant]
     Active Substance: ACETYLCYSTEINE
     Dosage: 200 MILLIGRAM, TID PER 7 DAYS
     Route: 048
  5. TACENOL [Concomitant]
     Dosage: 1 DOSAGE FORM, TID PER 7 DAYS
     Route: 048
  6. ACETYLCYSTEINE [Concomitant]
     Active Substance: ACETYLCYSTEINE

REACTIONS (3)
  - Seizure [Recovering/Resolving]
  - Syncope [Recovering/Resolving]
  - Insomnia [Unknown]

NARRATIVE: CASE EVENT DATE: 20221014
